FAERS Safety Report 11288325 (Version 2)
Quarter: 2015Q3

REPORT INFORMATION
  Report Type: Spontaneous
  Country: BR (occurrence: BR)
  Receive Date: 20150721
  Receipt Date: 20150730
  Transmission Date: 20151125
  Serious: Yes (Death, Hospitalization)
  Sender: FDA-Public Use
  Company Number: BR-PFIZER INC-2015167962

PATIENT
  Age: 66 Year
  Sex: Female

DRUGS (4)
  1. SUTENT [Suspect]
     Active Substance: SUNITINIB MALATE
     Indication: RENAL CELL CARCINOMA
     Dosage: 50 MG, CYCLIC (ON ALTERNATE DAYS)
     Route: 048
     Dates: start: 20150508
  2. PARACETAMOL [Concomitant]
     Active Substance: ACETAMINOPHEN
     Dosage: UNK, 4X/DAY
  3. CODEINE [Concomitant]
     Active Substance: CODEINE
     Dosage: UNK, 4X/DAY
  4. BUSCOPAN [Concomitant]
     Active Substance: BUTYLSCOPOLAMINE BROMIDE
     Dosage: UNK, 4X/DAY

REACTIONS (7)
  - Hypophagia [Unknown]
  - Delirium [Unknown]
  - Painful defaecation [Not Recovered/Not Resolved]
  - Disease progression [Fatal]
  - Seizure [Unknown]
  - Swelling [Not Recovered/Not Resolved]
  - Renal cell carcinoma [Fatal]

NARRATIVE: CASE EVENT DATE: 201505
